FAERS Safety Report 21136664 (Version 1)
Quarter: 2022Q3

REPORT INFORMATION
  Report Type: Spontaneous
  Country: US (occurrence: None)
  Receive Date: 20220726
  Receipt Date: 20220726
  Transmission Date: 20221027
  Serious: Yes (Hospitalization)
  Sender: FDA-Public Use
  Company Number: None

PATIENT
  Age: 68 Year
  Sex: Male
  Weight: 69.85 kg

DRUGS (2)
  1. CLOPIDOGREL BISULFATE [Suspect]
     Active Substance: CLOPIDOGREL BISULFATE
     Indication: Vascular operation
     Dosage: FREQUENCY : DAILY;?
     Route: 048
     Dates: start: 20190228, end: 20220718
  2. CLOPIDOGREL BISULFATE [Suspect]
     Active Substance: CLOPIDOGREL BISULFATE
     Indication: Peripheral vascular disorder
     Dates: start: 20190628

REACTIONS (4)
  - Epistaxis [None]
  - Occult blood positive [None]
  - Red blood cell transfusion [None]
  - Therapy interrupted [None]

NARRATIVE: CASE EVENT DATE: 20220719
